FAERS Safety Report 17202414 (Version 1)
Quarter: 2019Q4

REPORT INFORMATION
  Report Type: Spontaneous
  Country: US (occurrence: US)
  Receive Date: 20191203
  Receipt Date: 20191203
  Transmission Date: 20200122
  Serious: No
  Sender: FDA-Public Use
  Company Number: None

PATIENT
  Age: 85 Year
  Sex: Male
  Weight: 70.31 kg

DRUGS (5)
  1. ATENOLOL. [Concomitant]
     Active Substance: ATENOLOL
  2. BENAZEPRIL [Concomitant]
     Active Substance: BENAZEPRIL HYDROCHLORIDE
  3. EZETIMIBE GENERIC FOR ZETIA 10MG [Suspect]
     Active Substance: EZETIMIBE
     Indication: MYOCARDIAL ISCHAEMIA
     Dosage: ?          QUANTITY:10 MG MILLIGRAM(S);?
     Route: 048
     Dates: start: 20190505, end: 20190706
  4. NITROGLYCERIN. [Concomitant]
     Active Substance: NITROGLYCERIN
  5. ECOTRIN [Concomitant]
     Active Substance: ASPIRIN

REACTIONS (9)
  - Arthralgia [None]
  - Hypoacusis [None]
  - Pain in extremity [None]
  - Swollen tongue [None]
  - Impaired driving ability [None]
  - Lip swelling [None]
  - Gait disturbance [None]
  - Asthenia [None]
  - Sinusitis [None]

NARRATIVE: CASE EVENT DATE: 20190705
